FAERS Safety Report 6233624-X (Version None)
Quarter: 2009Q2

REPORT INFORMATION
  Report Type: 
  Country: None (occurrence: None)
  Receive Date: 20090617
  Receipt Date: 20090612
  Transmission Date: 20091009
  Serious: Yes (Hospitalization)
  Sender: FDA-Public Use
  Company Number: CA-WYE-G03769909

PATIENT
  Sex: Male
  Weight: 70.4 kg

DRUGS (20)
  1. TACROLIMUS [Suspect]
     Indication: IMMUNOSUPPRESSION
     Dosage: UNKNOWN
     Route: 048
     Dates: start: 20061004, end: 20090331
  2. RAPAMUNE [Suspect]
     Indication: PROPHYLAXIS AGAINST TRANSPLANT REJECTION
     Route: 048
     Dates: start: 20090311, end: 20090514
  3. RAPAMUNE [Suspect]
     Dosage: A LOWER DOSE
     Route: 048
     Dates: start: 20090528
  4. PREDNISONE [Concomitant]
     Indication: PROPHYLAXIS AGAINST TRANSPLANT REJECTION
     Route: 048
     Dates: start: 20061220, end: 20080717
  5. PREDNISONE [Concomitant]
     Route: 048
     Dates: start: 20080718
  6. ATORVASTATIN CALCIUM [Concomitant]
     Indication: DYSLIPIDAEMIA
     Route: 048
     Dates: start: 20081115
  7. PANTOPRAZOLE SODIUM [Concomitant]
     Indication: PROPHYLAXIS
     Route: 048
     Dates: start: 20070101
  8. FUROSEMIDE [Concomitant]
     Indication: OEDEMA PERIPHERAL
     Route: 048
     Dates: start: 20090416
  9. OS-CAL [Concomitant]
     Indication: PROPHYLAXIS
     Dosage: 1 G EVERY
     Route: 048
     Dates: start: 20060101
  10. ONE-ALPHA [Concomitant]
     Indication: PROPHYLAXIS
     Dosage: .25 UG EVERY
     Route: 048
     Dates: start: 20060101
  11. FOSINOPRIL SODIUM [Concomitant]
     Indication: HYPERTENSION
     Dosage: 20 MG EVERY
     Route: 048
     Dates: start: 20071129
  12. METOPROLOL SUCCINATE [Concomitant]
     Indication: HYPERTENSION
     Dosage: 200 MG EVERY
     Route: 048
     Dates: start: 20061022
  13. NOVOLIN N [Concomitant]
     Indication: DIABETES MELLITUS
     Dosage: 14 TO 16 IU
     Route: 058
     Dates: start: 20061101
  14. NOVORAPID [Concomitant]
     Indication: DIABETES MELLITUS
     Dosage: 28 TO 36 IU
     Route: 058
     Dates: start: 20061101
  15. CLONIDINE [Concomitant]
     Indication: HYPERTENSION
     Dosage: .4 MG EVERY
     Route: 048
     Dates: start: 20061102
  16. AMLODIPINE [Concomitant]
     Indication: HYPERTENSION
     Dosage: 20 MG EVERY
     Route: 048
     Dates: start: 20061103
  17. PREGABALIN [Concomitant]
     Indication: SCIATICA
     Dosage: 125 MG EVERY
     Route: 048
     Dates: start: 20090115
  18. DOCUSATE SODIUM [Concomitant]
     Indication: CONSTIPATION
     Dosage: UNKNOWN
     Route: 048
     Dates: start: 20060101
  19. SENNOSIDE A+B [Concomitant]
     Indication: CONSTIPATION
     Dosage: UNKNOWN
     Route: 048
     Dates: start: 20060101
  20. MYCOPHENOLATE MOFETIL [Concomitant]
     Indication: PROPHYLAXIS AGAINST TRANSPLANT REJECTION
     Route: 048
     Dates: start: 20090417

REACTIONS (4)
  - CONDITION AGGRAVATED [None]
  - HAEMOPTYSIS [None]
  - THERAPEUTIC AGENT TOXICITY [None]
  - THROMBOCYTOPENIA [None]
